FAERS Safety Report 7390217-9 (Version None)
Quarter: 2011Q2

REPORT INFORMATION
  Report Type: 
  Country: None (occurrence: None)
  Receive Date: 20110401
  Receipt Date: 20110325
  Transmission Date: 20111010
  Serious: Yes (Hospitalization)
  Sender: FDA-Public Use
  Company Number: US-ROCHE-758415

PATIENT
  Sex: Female
  Weight: 69.9 kg

DRUGS (16)
  1. M.V.I. [Concomitant]
     Route: 048
     Dates: start: 19900401
  2. AQUAPHOR [Concomitant]
     Route: 061
  3. OXYCODONE [Concomitant]
     Indication: PAIN
     Route: 048
  4. BEVACIZUMAB [Suspect]
     Route: 042
     Dates: start: 20100915, end: 20110202
  5. PRILOSEC [Concomitant]
     Route: 048
     Dates: start: 19950701
  6. DECADRON [Concomitant]
     Route: 048
     Dates: start: 20100914
  7. VALIUM [Concomitant]
     Route: 048
     Dates: start: 20110201
  8. ASPIRIN [Concomitant]
     Indication: HYPERTENSION
     Route: 048
     Dates: start: 20100209, end: 20110201
  9. CIPRO [Concomitant]
     Dosage: INDICATION: ANTIBIOTIC
     Route: 048
  10. MOBIC [Concomitant]
     Indication: ARTHRITIS
     Route: 048
     Dates: start: 20091201
  11. CRESTOR [Concomitant]
     Route: 048
     Dates: start: 20070901
  12. FLU IMMUNIZATION [Concomitant]
     Dosage: X 1
     Route: 058
  13. EMLA [Concomitant]
     Route: 061
  14. VIT B12 [Concomitant]
     Route: 058
  15. SYSTANE ULTRA [Concomitant]
     Indication: DRY EYE
     Dosage: FREQUENCY: PRN
     Route: 065
  16. VALIUM [Concomitant]
     Indication: ANXIETY
     Route: 048
     Dates: start: 20100419

REACTIONS (4)
  - CONFUSIONAL STATE [None]
  - HYPERTENSION [None]
  - HAEMOGLOBIN DECREASED [None]
  - APHASIA [None]
